FAERS Safety Report 16321467 (Version 2)
Quarter: 2019Q2

REPORT INFORMATION
  Report Type: Spontaneous
  Country: JP (occurrence: JP)
  Receive Date: 20190516
  Receipt Date: 20190523
  Transmission Date: 20190711
  Serious: Yes (Life-Threatening, Hospitalization, Other)
  Sender: FDA-Public Use
  Company Number: JP-BRACCO-2019JP01309

PATIENT
  Age: 58 Year
  Sex: Male

DRUGS (15)
  1. LANSOPRAZOLE. [Concomitant]
     Active Substance: LANSOPRAZOLE
     Dosage: DAILY DOSE 15 MG
     Route: 048
  2. BELSOMRA [Concomitant]
     Active Substance: SUVOREXANT
     Dosage: DAILY DOSE 15 MG
     Route: 048
  3. LANSOPRAZOLE. [Concomitant]
     Active Substance: LANSOPRAZOLE
     Indication: MUCOSAL DISORDER
     Dosage: UNK
  4. POLAPREZINC [Concomitant]
     Active Substance: POLAPREZINC
     Indication: MUCOSAL DISORDER
     Dosage: UNK
  5. BELSOMRA [Concomitant]
     Active Substance: SUVOREXANT
     Indication: INSOMNIA
     Dosage: UNK
  6. IOPAMIRON [Suspect]
     Active Substance: IOPAMIDOL
     Indication: COMPUTERISED TOMOGRAM
     Dosage: 100 ML, SINGLE
     Route: 042
     Dates: start: 20190311, end: 20190311
  7. SOLU-CORTEF [Concomitant]
     Active Substance: HYDROCORTISONE SODIUM SUCCINATE
     Indication: PREMEDICATION
     Dosage: UNK
     Dates: start: 20190311, end: 20190311
  8. DAIKENCHUTO [Concomitant]
     Active Substance: HERBALS
     Dosage: DAILY DOSE 7.5 G
     Route: 048
  9. BELSOMRA [Concomitant]
     Active Substance: SUVOREXANT
     Dosage: DAILY DOSE 15 MG
     Route: 048
  10. DAIKENCHUTO [Concomitant]
     Active Substance: HERBALS
     Indication: ABDOMINAL DISTENSION
     Dosage: UNK
  11. OLMESARTAN OD [Concomitant]
     Indication: HYPERTENSION
     Dosage: DAILY DOSE 20 MG
     Route: 048
  12. LANSOPRAZOLE. [Concomitant]
     Active Substance: LANSOPRAZOLE
     Dosage: DAILY DOSE 15 MG
     Route: 048
  13. POLAPREZINC [Concomitant]
     Active Substance: POLAPREZINC
     Dosage: DAILY DOSE 150 MG
     Route: 048
  14. DAIKENCHUTO [Concomitant]
     Active Substance: HERBALS
     Dosage: DAILY DOSE 7.5 G
     Route: 048
  15. POLAPREZINC [Concomitant]
     Active Substance: POLAPREZINC
     Dosage: DAILY DOSE 150 MG
     Route: 048

REACTIONS (6)
  - Atrioventricular block [Recovered/Resolved]
  - Contraindicated product administered [Recovered/Resolved]
  - Anaphylactic shock [Recovered/Resolved]
  - Electrocardiogram ST segment depression [Recovered/Resolved]
  - Arteriospasm coronary [Recovered/Resolved]
  - Electrocardiogram ST segment elevation [Recovered/Resolved]

NARRATIVE: CASE EVENT DATE: 20190311
